FAERS Safety Report 18641978 (Version 1)
Quarter: 2020Q4

REPORT INFORMATION
  Report Type: Report from Study
  Country: FR (occurrence: FR)
  Receive Date: 20201221
  Receipt Date: 20201221
  Transmission Date: 20210114
  Serious: Yes (Other)
  Sender: FDA-Public Use
  Company Number: FR-GLAXOSMITHKLINE-FR2020EME089418

PATIENT
  Age: 74 Year
  Sex: Male
  Weight: 61 kg

DRUGS (12)
  1. BELANTAMAB MAFODOTIN. [Suspect]
     Active Substance: BELANTAMAB MAFODOTIN
     Dosage: 2.5 MG/KG
     Route: 042
     Dates: start: 20200428
  2. CARFILZOMIB [Concomitant]
     Active Substance: CARFILZOMIB
  3. POMALIDOMIDE [Concomitant]
     Active Substance: POMALIDOMIDE
  4. BELANTAMAB MAFODOTIN. [Suspect]
     Active Substance: BELANTAMAB MAFODOTIN
     Dosage: 2.5 MG/KG
     Route: 042
     Dates: start: 20200520
  5. ISATUXIMAB [Concomitant]
     Active Substance: ISATUXIMAB
  6. BELANTAMAB MAFODOTIN. [Suspect]
     Active Substance: BELANTAMAB MAFODOTIN
     Indication: PLASMA CELL MYELOMA
     Dosage: 2.5 MG/KG, CYC
     Route: 042
     Dates: start: 20200409
  7. AUGMENTIN [Concomitant]
     Active Substance: AMOXICILLIN\CLAVULANATE POTASSIUM
     Dosage: UNK
     Dates: start: 20200430, end: 20200506
  8. THALIDOMIDE [Concomitant]
     Active Substance: THALIDOMIDE
  9. IXAZOMIB [Concomitant]
     Active Substance: IXAZOMIB
  10. LENALIDOMIDE [Concomitant]
     Active Substance: LENALIDOMIDE
  11. DARATUMUMAB [Concomitant]
     Active Substance: DARATUMUMAB
  12. BORTEZOMIB. [Concomitant]
     Active Substance: BORTEZOMIB

REACTIONS (5)
  - Dyspnoea [Unknown]
  - Incorrect product administration duration [Unknown]
  - Cardiac failure [Unknown]
  - Condition aggravated [Unknown]
  - Pyrexia [Unknown]

NARRATIVE: CASE EVENT DATE: 20200430
